FAERS Safety Report 18693453 (Version 1)
Quarter: 2021Q1

REPORT INFORMATION
  Report Type: Spontaneous
  Country: BE (occurrence: BE)
  Receive Date: 20210104
  Receipt Date: 20210104
  Transmission Date: 20210419
  Serious: Yes (Other)
  Sender: FDA-Public Use
  Company Number: BE-LUPIN PHARMACEUTICALS INC.-2020-11488

PATIENT
  Sex: Female

DRUGS (1)
  1. MISOPROSTOL. [Suspect]
     Active Substance: MISOPROSTOL
     Indication: ABORTION INDUCED
     Dosage: UNK
     Route: 067

REACTIONS (5)
  - Amniotic cavity infection [Unknown]
  - Exposure during pregnancy [Unknown]
  - Premature delivery [Unknown]
  - Premature rupture of membranes [Unknown]
  - Induced abortion failed [Unknown]
